FAERS Safety Report 6406585-8 (Version None)
Quarter: 2009Q4

REPORT INFORMATION
  Report Type: 
  Country: None (occurrence: None)
  Receive Date: 20091015
  Receipt Date: 20091006
  Transmission Date: 20100525
  Serious: Yes (Other)
  Sender: FDA-Public Use
  Company Number: 2009AL006463

PATIENT
  Age: 29 Year
  Sex: Male

DRUGS (1)
  1. FEVERALL [Suspect]

REACTIONS (4)
  - ANAPHYLACTIC REACTION [None]
  - SIMILAR REACTION ON PREVIOUS EXPOSURE TO DRUG [None]
  - THROAT TIGHTNESS [None]
  - URTICARIA [None]
